FAERS Safety Report 5679112-0 (Version None)
Quarter: 2008Q1

REPORT INFORMATION
  Report Type: 
  Country: None (occurrence: None)
  Receive Date: 20080325
  Receipt Date: 20080303
  Transmission Date: 20080703
  Serious: Yes (Hospitalization, Disabling, Other)
  Sender: FDA-Public Use
  Company Number: JP-BRISTOL-MYERS SQUIBB COMPANY-14021067

PATIENT
  Age: 11 Year
  Sex: Male

DRUGS (10)
  1. ENDOXAN [Suspect]
     Indication: SYSTEMIC LUPUS ERYTHEMATOSUS
     Route: 041
     Dates: start: 20071005, end: 20071205
  2. PREDONINE [Suspect]
     Indication: LUPUS NEPHRITIS
     Route: 048
     Dates: start: 20061210
  3. PREDNISOLONE [Suspect]
     Indication: LUPUS NEPHRITIS
     Route: 048
     Dates: start: 20061210
  4. UROMITEXAN [Concomitant]
     Indication: PROPHYLAXIS
     Dosage: TAKEN ON 05-OCT-2007, 06-NOV-2007 AND 05-DEC-2007.
     Route: 042
     Dates: start: 20071005, end: 20071205
  5. GRANISETRON HCL [Concomitant]
     Dosage: ALSO TAKEN FROM 06/NOV/2007 AND 05DEC07
     Route: 042
     Dates: start: 20071005, end: 20071005
  6. ALFAROL [Concomitant]
     Dates: start: 20061220
  7. GLYCYRON [Concomitant]
     Dates: start: 20061229
  8. BREDININ [Concomitant]
     Dates: start: 20070320
  9. PERSANTINE [Concomitant]
     Dates: start: 20071205
  10. SELBEX [Concomitant]
     Dates: start: 20061220

REACTIONS (9)
  - C-REACTIVE PROTEIN INCREASED [None]
  - CONJUNCTIVAL HYPERAEMIA [None]
  - GASTRIC ULCER [None]
  - HEADACHE [None]
  - LIP EROSION [None]
  - LIVER DISORDER [None]
  - NAUSEA [None]
  - OSTEOPOROSIS [None]
  - PYREXIA [None]
